FAERS Safety Report 4411762-1 (Version None)
Quarter: 2004Q3

REPORT INFORMATION
  Report Type: 
  Country: None (occurrence: None)
  Receive Date: 20040727
  Receipt Date: 20040716
  Transmission Date: 20050211
  Serious: Yes (Disabling)
  Sender: FDA-Public Use
  Company Number: 24613

PATIENT
  Age: 46 Year
  Sex: Female

DRUGS (1)
  1. ALDARA [Suspect]
     Indication: BASAL CELL CARCINOMA
     Dosage: 5 IN 1 WEEK (S) TOPICAL
     Route: 061
     Dates: start: 20040401, end: 20040501

REACTIONS (10)
  - BASEDOW'S DISEASE [None]
  - CONDITION AGGRAVATED [None]
  - DISEASE RECURRENCE [None]
  - HEADACHE [None]
  - HOARSENESS [None]
  - HYPERTHYROIDISM [None]
  - IRRITABILITY [None]
  - LETHARGY [None]
  - TREMOR [None]
  - WEIGHT DECREASED [None]
